FAERS Safety Report 19685859 (Version 1)
Quarter: 2021Q3

REPORT INFORMATION
  Report Type: Spontaneous
  Country: FR (occurrence: FR)
  Receive Date: 20210811
  Receipt Date: 20210811
  Transmission Date: 20211014
  Serious: Yes (Disabling)
  Sender: FDA-Public Use
  Company Number: FR-MYLANLABS-2021M1048833

PATIENT
  Age: 75 Year
  Sex: Female
  Weight: 77 kg

DRUGS (11)
  1. VENLAFAXINE [Suspect]
     Active Substance: VENLAFAXINE HYDROCHLORIDE
     Indication: PAIN
     Dosage: 75 MILLIGRAM, QD
     Route: 048
  2. LEVOTHYROX [Suspect]
     Active Substance: LEVOTHYROXINE
     Indication: HYPOTHYROIDISM
     Dosage: 125 MICROGRAM, QD
     Route: 048
     Dates: start: 2013
  3. UVEDOSE [Suspect]
     Active Substance: CHOLECALCIFEROL
     Indication: VITAMIN SUPPLEMENTATION
     Dosage: 1 DOSAGE FORM, MONTHLY
     Route: 048
     Dates: start: 20200611
  4. URBANYL [Suspect]
     Active Substance: CLOBAZAM
     Indication: PAIN
     Dosage: 20 MILLIGRAM, QD
     Route: 048
     Dates: start: 20200610
  5. URBANYL [Suspect]
     Active Substance: CLOBAZAM
     Dosage: UNK
     Route: 048
  6. GABAPENTIN. [Suspect]
     Active Substance: GABAPENTIN
     Dosage: UNK
     Route: 048
  7. DICODIN [Suspect]
     Active Substance: DIHYDROCODEINE BITARTRATE
     Indication: PAIN
     Dosage: 120 MILLIGRAM, QD
     Route: 048
     Dates: start: 20200610
  8. GABAPENTIN. [Suspect]
     Active Substance: GABAPENTIN
     Indication: PAIN
     Dosage: 1200 MILLIGRAM, QD
     Route: 048
     Dates: start: 201703
  9. DOLIPRANE [Suspect]
     Active Substance: ACETAMINOPHEN
     Indication: PAIN
     Dosage: UNK
     Route: 048
  10. DICODIN [Suspect]
     Active Substance: DIHYDROCODEINE BITARTRATE
     Dosage: UNK
     Route: 048
  11. ACLASTA [Suspect]
     Active Substance: ZOLEDRONIC ACID
     Indication: OSTEOPOROSIS
     Dosage: 1 DOSAGE FORM, QY
     Route: 042
     Dates: start: 201403, end: 201503

REACTIONS (6)
  - Constipation [Recovering/Resolving]
  - Tooth fracture [Recovered/Resolved with Sequelae]
  - Periodontitis [Not Recovered/Not Resolved]
  - Dry mouth [Not Recovered/Not Resolved]
  - Dry eye [Not Recovered/Not Resolved]
  - Gingival recession [Recovered/Resolved with Sequelae]

NARRATIVE: CASE EVENT DATE: 202007
